FAERS Safety Report 5807876-1 (Version None)
Quarter: 2008Q3

REPORT INFORMATION
  Report Type: 
  Country: None (occurrence: None)
  Receive Date: 20080711
  Receipt Date: 20080623
  Transmission Date: 20090109
  Serious: No
  Sender: FDA-Public Use
  Company Number: US-BOEHRINGER INGELHEIM GMBH, GERMANY-2008-BP-00806BP

PATIENT
  Age: 58 Year
  Sex: Female
  Weight: 68 kg

DRUGS (6)
  1. MICARDIS HCT [Suspect]
     Indication: HYPERTENSION
     Route: 048
     Dates: start: 20071016, end: 20071101
  2. ELAVIL [Concomitant]
  3. SKELAXIN [Concomitant]
  4. DARVOCET [Concomitant]
  5. ASPIRIN [Concomitant]
  6. SYNTHROID [Concomitant]

REACTIONS (2)
  - HEADACHE [None]
  - MIGRAINE [None]
